FAERS Safety Report 19323333 (Version 1)
Quarter: 2021Q2

REPORT INFORMATION
  Report Type: Spontaneous
  Country: US (occurrence: US)
  Receive Date: 20210528
  Receipt Date: 20210528
  Transmission Date: 20210717
  Serious: No
  Sender: FDA-Public Use
  Company Number: US-BAUSCH-BL-2021-016444

PATIENT
  Age: 69 Year
  Sex: Male

DRUGS (3)
  1. VITAMINS [Concomitant]
     Active Substance: VITAMINS
     Indication: PRODUCT USED FOR UNKNOWN INDICATION
  2. OMEGA 3 [Concomitant]
     Active Substance: OMEGA-3 FATTY ACIDS
     Indication: PRODUCT USED FOR UNKNOWN INDICATION
  3. BESIVANCE [Suspect]
     Active Substance: BESIFLOXACIN
     Indication: DIPLOPIA
     Dosage: ONE DROP IN BOTH EYES TWICE DAILY
     Route: 047
     Dates: start: 20210430

REACTIONS (3)
  - Vision blurred [Unknown]
  - Extra dose administered [Unknown]
  - Product container issue [Unknown]

NARRATIVE: CASE EVENT DATE: 2021
